FAERS Safety Report 19175992 (Version 1)
Quarter: 2021Q2

REPORT INFORMATION
  Report Type: Spontaneous
  Country: CA (occurrence: CA)
  Receive Date: 20210423
  Receipt Date: 20210423
  Transmission Date: 20210717
  Serious: Yes (Other)
  Sender: FDA-Public Use
  Company Number: CA-FERRINGPH-2021FE02525

PATIENT

DRUGS (4)
  1. CERVIDIL [Suspect]
     Active Substance: DINOPROSTONE
     Indication: LABOUR INDUCTION
     Dosage: 10 MG, ONCE/SINGLE
     Route: 064
     Dates: start: 20210308, end: 20210309
  2. OXYTOCIN. [Suspect]
     Active Substance: OXYTOCIN
     Indication: LABOUR INDUCTION
     Dosage: UNK
     Route: 064
     Dates: start: 202103
  3. LABETALOL [Concomitant]
     Active Substance: LABETALOL\LABETALOL HYDROCHLORIDE
     Indication: PRODUCT USED FOR UNKNOWN INDICATION
     Route: 064
  4. CERVIDIL [Suspect]
     Active Substance: DINOPROSTONE
     Dosage: 10 MG, ONCE/SINGLE
     Route: 064
     Dates: start: 20210309, end: 20210310

REACTIONS (1)
  - Resuscitation [Unknown]

NARRATIVE: CASE EVENT DATE: 202103
